FAERS Safety Report 11170943 (Version 1)
Quarter: 2015Q2

REPORT INFORMATION
  Report Type: Spontaneous
  Country: US (occurrence: None)
  Receive Date: 20150605
  Receipt Date: 20150605
  Transmission Date: 20150821
  Serious: Yes (Disabling)
  Sender: FDA-Public Use
  Company Number: None

PATIENT
  Age: 53 Year
  Sex: Female
  Weight: 127.01 kg

DRUGS (15)
  1. GABAPENTIN. [Concomitant]
     Active Substance: GABAPENTIN
  2. TYLENOL [Concomitant]
     Active Substance: ACETAMINOPHEN
  3. LEVAQUIN [Suspect]
     Active Substance: LEVOFLOXACIN
     Indication: RESPIRATORY TRACT INFECTION
     Dosage: 7 PILLS
     Route: 048
     Dates: start: 20150205, end: 20150211
  4. AMOLORIDE W/HCTZ [Concomitant]
  5. CITALOPRAM [Concomitant]
     Active Substance: CITALOPRAM HYDROBROMIDE
  6. NAPROXEN. [Concomitant]
     Active Substance: NAPROXEN
  7. SYMBICORT [Concomitant]
     Active Substance: BUDESONIDE\FORMOTEROL FUMARATE DIHYDRATE
  8. ERGOCALCIFEROL MEDICAL DEVICES [Concomitant]
  9. OMEPRAZOLE. [Concomitant]
     Active Substance: OMEPRAZOLE
  10. CANE [Concomitant]
  11. WALKER SEAT [Concomitant]
     Active Substance: DEVICE
  12. ASPIRIN. [Concomitant]
     Active Substance: ASPIRIN
  13. CLONIDINE. [Concomitant]
     Active Substance: CLONIDINE
  14. TOPRAL [Concomitant]
     Active Substance: SULTOPRIDE HYDROCHLORIDE
  15. PROVENTIL HFA [Concomitant]
     Active Substance: ALBUTEROL SULFATE

REACTIONS (1)
  - Neuropathy peripheral [None]

NARRATIVE: CASE EVENT DATE: 20150213
